FAERS Safety Report 4445134-0 (Version None)
Quarter: 2004Q3

REPORT INFORMATION
  Report Type: 
  Country: None (occurrence: None)
  Receive Date: 20040909
  Receipt Date: 20040824
  Transmission Date: 20050211
  Serious: Yes (Other)
  Sender: FDA-Public Use
  Company Number: US-AMGEN-US088430

PATIENT
  Sex: Male

DRUGS (6)
  1. ENBREL [Suspect]
     Indication: PSORIATIC ARTHROPATHY
     Route: 058
     Dates: start: 20031223
  2. PREDNISONE [Concomitant]
     Dates: start: 19840101
  3. CELEBREX [Concomitant]
     Dates: start: 19950101
  4. ZETIA [Concomitant]
     Dates: start: 20030101
  5. ACIPHEX [Concomitant]
     Dates: start: 20030801
  6. ZOLOFT [Concomitant]
     Dates: start: 20030630

REACTIONS (3)
  - DIPLOPIA [None]
  - EYELID PTOSIS [None]
  - MYASTHENIA GRAVIS [None]
